FAERS Safety Report 11516944 (Version 1)
Quarter: 2015Q3

REPORT INFORMATION
  Report Type: Spontaneous
  Country: US (occurrence: US)
  Receive Date: 20150917
  Receipt Date: 20150917
  Transmission Date: 20151125
  Serious: Yes (Death, Other)
  Sender: FDA-Public Use
  Company Number: US-TAKEDA-2014TUS010085

PATIENT

DRUGS (16)
  1. GLUCOTROL [Concomitant]
     Active Substance: GLIPIZIDE
     Dosage: 10 MG TABLET IVX, UNK
     Dates: start: 20061124, end: 20090410
  2. LEVEMIR [Concomitant]
     Active Substance: INSULIN DETEMIR
     Dosage: 100 UNITS/ML VIAL NOV, UNK
     Dates: start: 20090113, end: 20100429
  3. JANUVIA [Concomitant]
     Active Substance: SITAGLIPTIN PHOSPHATE
     Dosage: 100 MG, UNK
     Dates: start: 20080115, end: 20080728
  4. KOMBIGLYZE XR [Concomitant]
     Active Substance: METFORMIN HYDROCHLORIDE\SAXAGLIPTIN HYDROCHLORIDE
     Indication: DIABETES MELLITUS
     Dosage: 2.5-1000 MG, TM24, UNK
     Route: 048
     Dates: start: 2012
  5. ACTOS [Suspect]
     Active Substance: PIOGLITAZONE HYDROCHLORIDE
     Indication: TYPE 2 DIABETES MELLITUS
     Dosage: 30 MG, UNK
     Route: 048
     Dates: start: 20080903, end: 20081116
  6. AVANDIA [Concomitant]
     Active Substance: ROSIGLITAZONE MALEATE
     Dosage: 4 MG, UNK
     Dates: start: 20050519, end: 20050621
  7. ACTOS [Suspect]
     Active Substance: PIOGLITAZONE HYDROCHLORIDE
     Dosage: 45 MG, UNK
     Route: 048
     Dates: start: 20091102, end: 20100823
  8. METFORMIN HCL [Concomitant]
     Active Substance: METFORMIN HYDROCHLORIDE
     Dosage: 850 MG, UNK
     Dates: start: 20080911, end: 20090419
  9. HUMULIN L [Concomitant]
     Active Substance: INSULIN HUMAN
     Indication: DIABETES MELLITUS
     Dosage: 100 UNIT/ML, SUSP, SU-Q, UNK
     Dates: start: 2014
  10. LANTUS [Concomitant]
     Active Substance: INSULIN GLARGINE
     Dosage: 100 UNIT/ML, UNK
     Dates: start: 2012, end: 2014
  11. METFORMIN HCL [Concomitant]
     Active Substance: METFORMIN HYDROCHLORIDE
     Dosage: 1000 MG, UNK
     Dates: start: 20070115, end: 20080807
  12. METFORMIN HCL [Concomitant]
     Active Substance: METFORMIN HYDROCHLORIDE
     Dosage: 1000 MG, UNK
     Dates: start: 2013, end: 20140222
  13. LEVEMIR [Concomitant]
     Active Substance: INSULIN DETEMIR
     Dosage: 100 UNITS/MNOV, FLEXPEN
     Dates: start: 20081029
  14. METFORMIN HCL [Concomitant]
     Active Substance: METFORMIN HYDROCHLORIDE
     Dosage: 1000 MG, UNK
     Dates: start: 20050121, end: 20061218
  15. AVANDIA [Concomitant]
     Active Substance: ROSIGLITAZONE MALEATE
     Dosage: 8 MG, UNK
     Dates: start: 20050801, end: 20080102
  16. GLUCOTROL [Concomitant]
     Active Substance: GLIPIZIDE
     Dosage: 5 MG TABLET ZEN, UNK
     Dates: start: 20050120, end: 20061026

REACTIONS (7)
  - Metastases to liver [Unknown]
  - Urethral cancer [Unknown]
  - Metastases to kidney [Unknown]
  - Metastases to lung [Unknown]
  - Bladder cancer [Unknown]
  - Death [Fatal]
  - Diet refusal [Unknown]

NARRATIVE: CASE EVENT DATE: 20120210
